FAERS Safety Report 8998005 (Version 1)
Quarter: 2013Q1

REPORT INFORMATION
  Report Type: Spontaneous
  Country: US (occurrence: US)
  Receive Date: 20130104
  Receipt Date: 20130104
  Transmission Date: 20140127
  Serious: No
  Sender: FDA-Public Use
  Company Number: US-ASTRAZENECA-2012SE92707

PATIENT
  Sex: Male

DRUGS (1)
  1. CRESTOR [Suspect]
     Route: 048

REACTIONS (6)
  - Pain [Unknown]
  - Chest pain [Unknown]
  - Dyspepsia [Unknown]
  - Headache [Unknown]
  - Fatigue [Unknown]
  - Intentional drug misuse [Unknown]
